FAERS Safety Report 6744375-7 (Version None)
Quarter: 2010Q2

REPORT INFORMATION
  Report Type: 
  Country: None (occurrence: None)
  Receive Date: 20100527
  Receipt Date: 20100514
  Transmission Date: 20101027
  Serious: Yes (Death)
  Sender: FDA-Public Use
  Company Number: DE-GENENTECH-296294

PATIENT
  Sex: Male
  Weight: 74 kg

DRUGS (2)
  1. RITUXIMAB [Suspect]
     Indication: NON-HODGKIN'S LYMPHOMA
     Dosage: 375 MG/M2, UNK
     Route: 042
     Dates: start: 20070123
  2. BENDAMUSTINE [Suspect]
     Indication: NON-HODGKIN'S LYMPHOMA
     Dosage: 90 MG/M2, UNK
     Route: 042
     Dates: start: 20070124

REACTIONS (2)
  - PNEUMONIA FUNGAL [None]
  - SEPSIS [None]
